FAERS Safety Report 5518959-8 (Version None)
Quarter: 2007Q4

REPORT INFORMATION
  Report Type: 
  Country: None (occurrence: None)
  Receive Date: 20071114
  Receipt Date: 20071114
  Transmission Date: 20080405
  Serious: Yes (Life-Threatening)
  Sender: FDA-Public Use
  Company Number: None

PATIENT
  Age: 77 Year
  Sex: Female

DRUGS (4)
  1. AVELOX [Suspect]
     Indication: BRONCHITIS
     Dosage: 400 MG DAILY IV
     Route: 042
     Dates: start: 20060930, end: 20061001
  2. FLUTICASONE PROPIONATE [Concomitant]
  3. ZITHROMAX [Concomitant]
  4. STEROIDS [Concomitant]

REACTIONS (2)
  - RASH [None]
  - THROAT TIGHTNESS [None]
